FAERS Safety Report 18640299 (Version 4)
Quarter: 2022Q3

REPORT INFORMATION
  Report Type: Spontaneous
  Country: ZA (occurrence: ZA)
  Receive Date: 20201220
  Receipt Date: 20220904
  Transmission Date: 20221027
  Serious: Yes (Other)
  Sender: FDA-Public Use
  Company Number: ZA-PFIZER INC-2018431962

PATIENT
  Age: 5 Year
  Sex: Female

DRUGS (4)
  1. ENBREL [Suspect]
     Active Substance: ETANERCEPT
     Indication: Product used for unknown indication
     Dosage: 25 MG, WEEKLY
     Route: 058
     Dates: start: 20141101
  2. ENBREL [Suspect]
     Active Substance: ETANERCEPT
     Dosage: UNK
     Route: 065
     Dates: start: 2019
  3. PREDNISONE [Suspect]
     Active Substance: PREDNISONE
     Indication: Product used for unknown indication
     Dosage: UNK, 6 MONTHS PULSES GIVEN
     Route: 065
     Dates: start: 20130206
  4. HYDROXYCHLOROQUINE [Suspect]
     Active Substance: HYDROXYCHLOROQUINE
     Indication: Product used for unknown indication
     Dosage: 100 MG, DAILY
     Route: 065
     Dates: start: 20140112

REACTIONS (4)
  - Juvenile idiopathic arthritis [Unknown]
  - Off label use [Unknown]
  - Treatment noncompliance [Unknown]
  - Rash [Unknown]

NARRATIVE: CASE EVENT DATE: 20161116
